FAERS Safety Report 5779777-9 (Version None)
Quarter: 2008Q2

REPORT INFORMATION
  Report Type: 
  Country: None (occurrence: None)
  Receive Date: 20080618
  Receipt Date: 20080606
  Transmission Date: 20081010
  Serious: Yes (Hospitalization)
  Sender: FDA-Public Use
  Company Number: 220001J08AUS

PATIENT
  Age: 9 Year
  Sex: Female

DRUGS (2)
  1. SAIZEN [Suspect]
     Indication: GROWTH RETARDATION
     Dosage: 1.2 MG, 6 IN 1 WEEKS, SUBCUTANEOUS; 1.2 MG, 6 IN 1 WEEKS, SUBCUTANEOUS
     Route: 058
     Dates: start: 20070410, end: 20080601
  2. SAIZEN [Suspect]
     Indication: GROWTH RETARDATION
     Dosage: 1.2 MG, 6 IN 1 WEEKS, SUBCUTANEOUS; 1.2 MG, 6 IN 1 WEEKS, SUBCUTANEOUS
     Route: 058
     Dates: start: 20080604

REACTIONS (1)
  - EAR OPERATION [None]
